FAERS Safety Report 11816416 (Version 2)
Quarter: 2015Q4

REPORT INFORMATION
  Report Type: Spontaneous
  Country: TW (occurrence: TW)
  Receive Date: 20151209
  Receipt Date: 20151215
  Transmission Date: 20160305
  Serious: Yes (Hospitalization)
  Sender: FDA-Public Use
  Company Number: TW-AMGEN-TWNSP2015129463

PATIENT
  Age: 60 Year
  Sex: Female

DRUGS (1)
  1. ENBREL [Suspect]
     Active Substance: ETANERCEPT
     Indication: RHEUMATOID ARTHRITIS
     Dosage: 25 MG, Q5D (25MG ONCE PER 5 DAYS)
     Route: 058
     Dates: start: 20121227

REACTIONS (3)
  - Hemiplegia [Recovering/Resolving]
  - Nerve injury [Recovering/Resolving]
  - Exostosis [Recovering/Resolving]
